FAERS Safety Report 7777227-4 (Version None)
Quarter: 2011Q3

REPORT INFORMATION
  Report Type: 
  Country: None (occurrence: None)
  Receive Date: 20110926
  Receipt Date: 20110913
  Transmission Date: 20111222
  Serious: Yes (Hospitalization)
  Sender: FDA-Public Use
  Company Number: PHHY2011AT82118

PATIENT
  Age: 55 Year
  Sex: Female

DRUGS (6)
  1. DICLOFENAC [Concomitant]
     Dosage: 50 MG, UNK
  2. PANTOPRAZOLE SODIUM [Concomitant]
     Dosage: 40 MG, UNK
     Dates: start: 20100201
  3. AMOXICILLIN [Concomitant]
     Dosage: 2000 MG, UNK
     Dates: start: 20100201
  4. TRAMADOL [Concomitant]
     Dosage: 50 MG, UNK
  5. CLARITHROMYCIN [Concomitant]
     Dosage: 1000 MG, UNK
     Dates: start: 20100201
  6. LDT600 [Suspect]
     Indication: HEPATITIS B
     Dosage: 600 MG, UNK
     Dates: start: 20090122

REACTIONS (9)
  - DIARRHOEA [None]
  - INSOMNIA [None]
  - FATIGUE [None]
  - MYALGIA [None]
  - BLOOD CREATINE PHOSPHOKINASE INCREASED [None]
  - PANCREATITIS [None]
  - NAUSEA [None]
  - GASTRITIS [None]
  - HEADACHE [None]
